FAERS Safety Report 5240421-0 (Version None)
Quarter: 2007Q1

REPORT INFORMATION
  Report Type: 
  Country: None (occurrence: None)
  Receive Date: 20061208
  Receipt Date: 20051107
  Transmission Date: 20070707
  Serious: Yes (Other)
  Sender: FDA-Public Use
  Company Number: 2005UW16854

PATIENT
  Age: 75 Year
  Sex: Female

DRUGS (4)
  1. CRESTOR [Suspect]
     Indication: BLOOD CHOLESTEROL INCREASED
     Dosage: 10 MG
  2. PREVACID [Concomitant]
  3. SINGULAIR [Concomitant]
  4. NEURONTIN [Concomitant]

REACTIONS (2)
  - EYE SWELLING [None]
  - OEDEMA PERIPHERAL [None]
